FAERS Safety Report 6060645-2 (Version None)
Quarter: 2009Q1

REPORT INFORMATION
  Report Type: 
  Country: None (occurrence: None)
  Receive Date: 20090130
  Receipt Date: 20090130
  Transmission Date: 20090719
  Serious: Yes (Life-Threatening, Disabling)
  Sender: FDA-Public Use
  Company Number: None

PATIENT
  Sex: Female
  Weight: 30.8446 kg

DRUGS (2)
  1. ENTOCORT (3 MG EACH) -} ASTRAZENECA [Suspect]
     Indication: CROHN'S DISEASE
     Dosage: 3 TIMES DAY ORAL
     Route: 048
     Dates: start: 20070501, end: 20080520
  2. MERCAPTOPURINE [Suspect]
     Dosage: 50 MG 1 DAY/25 DLY ORAL
     Route: 048
     Dates: start: 20070401

REACTIONS (1)
  - IMMUNODEFICIENCY COMMON VARIABLE [None]
